FAERS Safety Report 8503877-3 (Version None)
Quarter: 2012Q3

REPORT INFORMATION
  Report Type: 
  Country: None (occurrence: None)
  Receive Date: 20120711
  Receipt Date: 20120709
  Transmission Date: 20120928
  Serious: Yes (Hospitalization, Other)
  Sender: FDA-Public Use
  Company Number: JP-ABBOTT-09P-087-0585359-00

PATIENT
  Sex: Male
  Weight: 46.8 kg

DRUGS (14)
  1. AZITHROMYCIN [Concomitant]
     Indication: OPPORTUNISTIC INFECTION PROPHYLAXIS
     Route: 048
     Dates: start: 20081018
  2. VALGANCICLOVIR [Concomitant]
     Indication: CYTOMEGALOVIRUS INFECTION
     Dates: start: 20081106, end: 20081116
  3. TRUVADA [Concomitant]
     Indication: HIV INFECTION
     Route: 048
     Dates: start: 20081201
  4. TRUVADA [Concomitant]
  5. FLUCONAZOLE [Concomitant]
     Indication: FUNGAL INFECTION
     Dates: start: 20081018, end: 20090122
  6. URSODIOL [Concomitant]
     Indication: LIVER DISORDER
     Dates: start: 20081030, end: 20081117
  7. KALETRA [Suspect]
     Indication: HIV INFECTION
     Route: 048
     Dates: start: 20081201, end: 20110427
  8. SULFAMETHOXAZOLE AND TRIMETHOPRIM [Concomitant]
     Indication: PNEUMOCYSTIS JIROVECI PNEUMONIA
     Route: 048
     Dates: start: 20081018, end: 20081130
  9. FAMOTIDINE [Concomitant]
     Indication: PROPHYLAXIS AGAINST GASTROINTESTINAL ULCER
     Dates: start: 20081030, end: 20090122
  10. KALETRA [Suspect]
  11. VALGANCICLOVIR [Concomitant]
     Route: 048
     Dates: start: 20081220, end: 20090101
  12. SULFAMETHOXAZOLE AND TRIMETHOPRIM [Concomitant]
     Dates: start: 20081201
  13. NORVIR [Suspect]
     Indication: HIV INFECTION
     Dosage: 100 MG DAILY
     Route: 048
     Dates: start: 20110428
  14. DARUNAVIR ETHANOLATE [Concomitant]
     Indication: HIV INFECTION
     Dosage: 800 MG DAILY
     Route: 048
     Dates: start: 20110428

REACTIONS (4)
  - CYTOMEGALOVIRUS INFECTION [None]
  - ADRENALITIS [None]
  - ADRENAL INSUFFICIENCY [None]
  - IMMUNE RECONSTITUTION SYNDROME [None]
